FAERS Safety Report 21023303 (Version 2)
Quarter: 2022Q3

REPORT INFORMATION
  Report Type: Spontaneous
  Country: CO (occurrence: CO)
  Receive Date: 20220629
  Receipt Date: 20220708
  Transmission Date: 20221026
  Serious: No
  Sender: FDA-Public Use
  Company Number: CO-SA-SAC20220624001789

PATIENT
  Age: 18 Year
  Sex: Female

DRUGS (1)
  1. CEREZYME [Suspect]
     Active Substance: IMIGLUCERASE
     Indication: Enzyme activity abnormal
     Dosage: UNK

REACTIONS (1)
  - Product dispensing error [Unknown]
